FAERS Safety Report 9157940 (Version 3)
Quarter: 2013Q2

REPORT INFORMATION
  Report Type: Spontaneous
  Country: SE (occurrence: SE)
  Receive Date: 20130312
  Receipt Date: 20130606
  Transmission Date: 20140414
  Serious: Yes (Death, Other)
  Sender: FDA-Public Use
  Company Number: SE-ROCHE-1199951

PATIENT
  Age: 78 Year
  Sex: Female

DRUGS (9)
  1. MABTHERA [Suspect]
     Indication: GRANULOMATOSIS WITH POLYANGIITIS
     Dosage: LAST DOSE ON 21 DECEMBER
     Route: 042
     Dates: start: 20121205, end: 20121221
  2. METOTREXATE [Suspect]
     Indication: GRANULOMATOSIS WITH POLYANGIITIS
     Route: 048
     Dates: start: 20121106, end: 20130122
  3. PREDNISOLON [Suspect]
     Indication: GRANULOMATOSIS WITH POLYANGIITIS
     Route: 048
  4. PREDNISOLON [Suspect]
     Dosage: LAST DOSE ON 21 DECEMBER
     Route: 065
  5. ALVEDON [Concomitant]
  6. ALENAT [Concomitant]
  7. CALCICHEW D3 [Concomitant]
  8. STILNOCT [Concomitant]
  9. FOLACIN [Concomitant]

REACTIONS (4)
  - Pyrexia [Fatal]
  - Chills [Fatal]
  - Pneumocystis jirovecii infection [Fatal]
  - Dyspnoea [Fatal]
